FAERS Safety Report 13098678 (Version 1)
Quarter: 2017Q1

REPORT INFORMATION
  Report Type: Spontaneous
  Country: US (occurrence: US)
  Receive Date: 20170109
  Receipt Date: 20170109
  Transmission Date: 20170428
  Serious: Yes (Other)
  Sender: FDA-Public Use
  Company Number: US-JNJFOC-20170106070

PATIENT
  Age: 71 Year
  Sex: Female
  Weight: 56 kg

DRUGS (10)
  1. IMBRUVICA [Suspect]
     Active Substance: IBRUTINIB
     Indication: CHRONIC LYMPHOCYTIC LEUKAEMIA
     Route: 048
     Dates: start: 20160830, end: 20160927
  2. GLUCOSAMINE + CHONDROITIN SULFATE [Concomitant]
     Indication: ARTHRITIS
  3. BABY ASPIRIN [Concomitant]
     Active Substance: ASPIRIN
  4. IMBRUVICA [Suspect]
     Active Substance: IBRUTINIB
     Indication: CHRONIC LYMPHOCYTIC LEUKAEMIA
     Route: 048
     Dates: start: 20160820, end: 20160829
  5. SIMVASTATIN. [Concomitant]
     Active Substance: SIMVASTATIN
     Indication: BLOOD CHOLESTEROL
  6. FOLIC ACID. [Concomitant]
     Active Substance: FOLIC ACID
  7. DOXYCYCLINE. [Suspect]
     Active Substance: DOXYCYCLINE
     Indication: PNEUMONIA
     Route: 065
     Dates: start: 2016
  8. ALLOPURINOL. [Concomitant]
     Active Substance: ALLOPURINOL
  9. AUGMENTIN [Suspect]
     Active Substance: AMOXICILLIN\CLAVULANATE POTASSIUM
     Indication: PNEUMONIA
     Dates: start: 2016
  10. FISH OIL [Concomitant]
     Active Substance: FISH OIL

REACTIONS (14)
  - Somnolence [Recovered/Resolved]
  - Nodule [Recovering/Resolving]
  - Off label use [Recovered/Resolved]
  - Sepsis [Unknown]
  - Localised infection [Recovered/Resolved]
  - Night sweats [Recovered/Resolved]
  - Pain [Unknown]
  - Pneumonia [Recovered/Resolved]
  - Dysgeusia [Unknown]
  - Contusion [Recovering/Resolving]
  - Pruritus [Recovered/Resolved]
  - Skin fissures [Unknown]
  - Blood pressure decreased [Recovered/Resolved]
  - Incorrect dose administered [Recovered/Resolved]

NARRATIVE: CASE EVENT DATE: 2016
